FAERS Safety Report 10584843 (Version 7)
Quarter: 2018Q2

REPORT INFORMATION
  Report Type: Report from Study
  Country: DE (occurrence: DE)
  Receive Date: 20141114
  Receipt Date: 20180430
  Transmission Date: 20180711
  Serious: Yes (Death, Hospitalization)
  Sender: FDA-Public Use
  Company Number: DE-BRISTOL-MYERS SQUIBB COMPANY-21551973

PATIENT
  Age: 65 Year
  Sex: Male
  Weight: 54 kg

DRUGS (12)
  1. NOVALGIN                           /00169801/ [Concomitant]
     Active Substance: ACETAMINOPHEN\CAFFEINE\PROPYPHENAZONE
     Indication: PRODUCT USED FOR UNKNOWN INDICATION
     Route: 065
  2. FRESUBIN ENERGY [Concomitant]
     Indication: PRODUCT USED FOR UNKNOWN INDICATION
     Dosage: 1 DF, UNK
     Route: 065
  3. 5-FLUOROURACIL [Suspect]
     Active Substance: FLUOROURACIL
     Indication: SQUAMOUS CELL CARCINOMA OF HEAD AND NECK
     Dosage: 1000 MG/M2, UNK
     Route: 042
     Dates: start: 20141016, end: 20141020
  4. ATOSIL                             /00033002/ [Concomitant]
     Active Substance: PROMETHAZINE HYDROCHLORIDE
     Indication: PRODUCT USED FOR UNKNOWN INDICATION
     Dosage: UNK
     Route: 065
  5. RANITIDINE. [Concomitant]
     Active Substance: RANITIDINE
     Indication: PREMEDICATION
     Dosage: UNK
     Route: 065
     Dates: start: 20141016, end: 20141016
  6. NEXIUM [Concomitant]
     Active Substance: ESOMEPRAZOLE MAGNESIUM
     Indication: PRODUCT USED FOR UNKNOWN INDICATION
     Route: 065
  7. GRANISETRON [Concomitant]
     Active Substance: GRANISETRON
     Indication: PREMEDICATION
     Dosage: UNK
     Route: 065
     Dates: start: 20141016, end: 20141016
  8. TILIDIN [Concomitant]
     Active Substance: NALOXONE HYDROCHLORIDE\TILIDINE HYDROCHLORIDE
     Indication: PRODUCT USED FOR UNKNOWN INDICATION
     Dosage: UNK UNK, PRN
     Route: 065
  9. APREPITANT. [Concomitant]
     Active Substance: APREPITANT
     Indication: PREMEDICATION
     Dosage: 1 DF, UNK
     Route: 065
     Dates: start: 20141016, end: 20141016
  10. MCP [Concomitant]
     Active Substance: METOCLOPRAMIDE HYDROCHLORIDE
     Indication: PRODUCT USED FOR UNKNOWN INDICATION
     Dosage: UNK, PRN
     Route: 065
  11. CETUXIMAB. [Suspect]
     Active Substance: CETUXIMAB
     Indication: SQUAMOUS CELL CARCINOMA OF HEAD AND NECK
     Dosage: 640 MG, QWK
     Route: 042
     Dates: start: 20141016, end: 20141022
  12. CISPLATIN. [Suspect]
     Active Substance: CISPLATIN
     Indication: SQUAMOUS CELL CARCINOMA OF HEAD AND NECK
     Dosage: 100 MG/M2, UNK
     Route: 042
     Dates: start: 20141016, end: 20141020

REACTIONS (6)
  - Diarrhoea [Fatal]
  - Pulmonary sepsis [Fatal]
  - Vomiting [Fatal]
  - Platelet count decreased [Unknown]
  - General physical health deterioration [Fatal]
  - Anaemia [Unknown]

NARRATIVE: CASE EVENT DATE: 20141022
